FAERS Safety Report 10050899 (Version 1)
Quarter: 2014Q2

REPORT INFORMATION
  Report Type: Spontaneous
  Country: CA (occurrence: CA)
  Receive Date: 20140401
  Receipt Date: 20140401
  Transmission Date: 20141212
  Serious: Yes (Hospitalization)
  Sender: FDA-Public Use
  Company Number: CA-BAYER-2014-044000

PATIENT
  Age: 21 Year
  Sex: Female
  Weight: 61.22 kg

DRUGS (3)
  1. GADOVIST [Suspect]
     Dosage: 6 ML, ONCE
     Route: 042
  2. EVRA [Concomitant]
  3. SALINE [Concomitant]

REACTIONS (4)
  - Chest discomfort [Unknown]
  - Eye swelling [Unknown]
  - Ocular hyperaemia [Unknown]
  - Vomiting [Unknown]
